FAERS Safety Report 23299906 (Version 2)
Quarter: 2024Q1

REPORT INFORMATION
  Report Type: Spontaneous
  Country: GB (occurrence: None)
  Receive Date: 20231215
  Receipt Date: 20240302
  Transmission Date: 20240409
  Serious: Yes (Other)
  Sender: FDA-Public Use
  Company Number: GB-ROCHE-3363242

PATIENT
  Sex: Female

DRUGS (4)
  1. TOCILIZUMAB [Suspect]
     Active Substance: TOCILIZUMAB
     Indication: Giant cell arteritis
     Route: 058
     Dates: start: 20230306
  2. PREDNISOLONE [Concomitant]
     Active Substance: PREDNISOLONE
  3. OMEPRAZOLE [Concomitant]
     Active Substance: OMEPRAZOLE
  4. ERGOCALCIFEROL [Concomitant]
     Active Substance: ERGOCALCIFEROL

REACTIONS (5)
  - Lower limb fracture [Unknown]
  - Chromaturia [Unknown]
  - Vomiting [Unknown]
  - Pain [Unknown]
  - Off label use [Unknown]
